FAERS Safety Report 8776929 (Version 1)
Quarter: 2012Q4

REPORT INFORMATION
  Report Type: 
  Country: US (occurrence: US)
  Receive Date: 20120911
  Receipt Date: 20120911
  Transmission Date: 20130627
  Serious: Yes (Other)
  Sender: FDA-Public Use
  Company Number: US-BAYER-2012-093778

PATIENT
  Age: 54 Year
  Sex: Female
  Weight: 104.13 kg

DRUGS (3)
  1. YASMIN [Suspect]
  2. OCELLA [Suspect]
  3. OXYBUTYNIN [Concomitant]
     Dosage: 5 mg, 3-4 daily
     Route: 048

REACTIONS (2)
  - Deep vein thrombosis [Recovered/Resolved]
  - Thrombophlebitis superficial [Recovered/Resolved]
